FAERS Safety Report 5381106-X (Version None)
Quarter: 2007Q3

REPORT INFORMATION
  Report Type: 
  Country: None (occurrence: None)
  Receive Date: 20070706
  Receipt Date: 20070625
  Transmission Date: 20080115
  Serious: Yes (Hospitalization, Other)
  Sender: FDA-Public Use
  Company Number: US-PFIZER INC-2007039512

PATIENT
  Sex: Male
  Weight: 86.363 kg

DRUGS (10)
  1. LIPITOR [Suspect]
  2. NITROSTAT [Suspect]
     Indication: CHEST PAIN
  3. ZETIA [Concomitant]
  4. ISOSORBIDE DINITRATE [Concomitant]
  5. TORSEMIDE [Concomitant]
  6. PLAVIX [Concomitant]
  7. LEVOTHYROXINE SODIUM [Concomitant]
  8. AMIODARONE [Concomitant]
  9. METOPROLOL SUCCINATE [Concomitant]
  10. AVANDIA [Concomitant]

REACTIONS (2)
  - CHEST PAIN [None]
  - DRUG INEFFECTIVE [None]
